FAERS Safety Report 11781823 (Version 4)
Quarter: 2016Q1

REPORT INFORMATION
  Report Type: Spontaneous
  Country: US (occurrence: US)
  Receive Date: 20151126
  Receipt Date: 20160129
  Transmission Date: 20160525
  Serious: Yes (Death, Life-Threatening, Hospitalization, Disabling, Other)
  Sender: FDA-Public Use
  Company Number: US-009507513-1511USA013324

PATIENT
  Age: 58 Year
  Sex: Female
  Weight: 45.35 kg

DRUGS (12)
  1. KEYTRUDA [Suspect]
     Active Substance: PEMBROLIZUMAB
     Dosage: 95.6 MG, UNK
     Route: 042
     Dates: start: 20151007, end: 20151007
  2. LIDOCAINE HYDROCHLORIDE. [Concomitant]
     Active Substance: LIDOCAINE HYDROCHLORIDE
     Route: 065
  3. PROTONIX [Concomitant]
     Active Substance: PANTOPRAZOLE SODIUM
     Route: 065
  4. NAPROXEN. [Concomitant]
     Active Substance: NAPROXEN
     Route: 065
  5. KEYTRUDA [Suspect]
     Active Substance: PEMBROLIZUMAB
     Indication: PHARYNGEAL CANCER METASTATIC
     Dosage: 95.6 MG, UNK
     Route: 042
     Dates: start: 20151028, end: 20151028
  6. REMERON [Concomitant]
     Active Substance: MIRTAZAPINE
     Route: 065
  7. LEVAQUIN [Concomitant]
     Active Substance: LEVOFLOXACIN
     Route: 065
  8. ZOFRAN [Concomitant]
     Active Substance: ONDANSETRON HYDROCHLORIDE
     Route: 065
  9. SENOKOT [Concomitant]
     Active Substance: SENNOSIDES
     Route: 065
  10. DILAUDID [Concomitant]
     Active Substance: HYDROMORPHONE HYDROCHLORIDE
     Route: 065
  11. OCEAN SALINE NASAL SPRAY [Concomitant]
     Active Substance: SODIUM CHLORIDE
     Route: 065
  12. ROBITUSSIN (GUAIFENESIN) [Concomitant]
     Active Substance: GUAIFENESIN
     Route: 065

REACTIONS (8)
  - Pleural effusion [Unknown]
  - Acute respiratory failure [Fatal]
  - Neoplasm malignant [Fatal]
  - Pneumonia [Fatal]
  - Hypoxia [Fatal]
  - Dyspnoea [Not Recovered/Not Resolved]
  - Pleural effusion [Unknown]
  - Product use issue [Unknown]

NARRATIVE: CASE EVENT DATE: 2015
